FAERS Safety Report 24173071 (Version 5)
Quarter: 2025Q2

REPORT INFORMATION
  Report Type: Spontaneous
  Country: US (occurrence: US)
  Receive Date: 20240805
  Receipt Date: 20250408
  Transmission Date: 20250716
  Serious: Yes (Hospitalization)
  Sender: SANOFI AVENTIS
  Company Number: US-SA-SAC20240731001131

PATIENT
  Age: 77 Year
  Sex: Male
  Weight: 43.73 kg

DRUGS (2)
  1. KEVZARA [Suspect]
     Active Substance: SARILUMAB
     Indication: Polymyalgia rheumatica
     Dosage: 200 MG, QOW
     Route: 058
     Dates: start: 202405
  2. KEVZARA [Suspect]
     Active Substance: SARILUMAB
     Dosage: 200 MG, QOW
     Route: 058
     Dates: start: 202501, end: 2025

REACTIONS (13)
  - Vertigo [Unknown]
  - Nausea [Unknown]
  - Disorientation [Unknown]
  - Dizziness [Unknown]
  - Dyspnoea [Unknown]
  - Cardiac disorder [Unknown]
  - Mental status changes [Unknown]
  - Pruritus [Unknown]
  - Mobility decreased [Unknown]
  - Gait inability [Unknown]
  - Pain [Unknown]
  - Loss of personal independence in daily activities [Unknown]
  - White blood cell count decreased [Not Recovered/Not Resolved]

NARRATIVE: CASE EVENT DATE: 20240101
